FAERS Safety Report 9395891 (Version 2)
Quarter: 2013Q3

REPORT INFORMATION
  Report Type: Spontaneous
  Country: IT (occurrence: IT)
  Receive Date: 20130711
  Receipt Date: 20130807
  Transmission Date: 20140515
  Serious: Yes (Other)
  Sender: FDA-Public Use
  Company Number: IT-GLAXOSMITHKLINE-B0906058A

PATIENT
  Age: 18 Year
  Sex: Female

DRUGS (4)
  1. ALIFLUS [Suspect]
     Indication: PRODUCT USED FOR UNKNOWN INDICATION
     Route: 065
     Dates: start: 2010
  2. XOLAIR [Suspect]
     Indication: ASTHMA
     Dosage: 375MG MONTHLY
     Route: 058
     Dates: start: 20130227, end: 20130508
  3. SINGULAR [Suspect]
     Indication: ASTHMA
     Dosage: 10MG PER DAY
     Route: 048
     Dates: start: 20130220, end: 20130626
  4. XYZAL [Concomitant]
     Indication: PRODUCT USED FOR UNKNOWN INDICATION
     Route: 048
     Dates: start: 2013

REACTIONS (3)
  - Ventricular asystole [Unknown]
  - Palpitations [Recovered/Resolved]
  - Malaise [Recovered/Resolved]
